FAERS Safety Report 10514287 (Version 1)
Quarter: 2014Q4

REPORT INFORMATION
  Report Type: Spontaneous
  Country: US (occurrence: US)
  Receive Date: 20141013
  Receipt Date: 20141013
  Transmission Date: 20150528
  Serious: No
  Sender: FDA-Public Use
  Company Number: US-BAYER-2014-151480

PATIENT
  Age: 18 Year
  Sex: Female
  Weight: 59 kg

DRUGS (1)
  1. ALEVE [Suspect]
     Active Substance: NAPROXEN SODIUM
     Indication: DYSMENORRHOEA
     Dosage: 2 DF, PRN, BOTTLE COUNT 24S
     Route: 048

REACTIONS (2)
  - Overdose [None]
  - Drug ineffective [None]

NARRATIVE: CASE EVENT DATE: 20141009
